FAERS Safety Report 7036354-X (Version None)
Quarter: 2010Q4

REPORT INFORMATION
  Report Type: 
  Country: None (occurrence: None)
  Receive Date: 20101008
  Receipt Date: 20100930
  Transmission Date: 20110411
  Serious: Yes (Hospitalization)
  Sender: FDA-Public Use
  Company Number: US-ABBOTT-10P-163-0675291-00

PATIENT
  Sex: Female
  Weight: 58.566 kg

DRUGS (10)
  1. NIASPAN [Suspect]
     Indication: BLOOD CHOLESTEROL INCREASED
     Dates: start: 20100101, end: 20100601
  2. NIASPAN [Suspect]
     Dates: start: 20100601
  3. FISH OIL [Concomitant]
     Indication: SUPPLEMENTATION THERAPY
  4. CALCITONIN-SALMON [Concomitant]
     Indication: OSTEOPENIA
     Route: 045
  5. MULTI-VITAMIN [Concomitant]
     Indication: VITAMIN SUPPLEMENTATION
  6. COQ10 [Concomitant]
     Indication: VITAMIN SUPPLEMENTATION
  7. MAGNESIUM [Concomitant]
     Indication: MINERAL SUPPLEMENTATION
  8. POTASSIUM [Concomitant]
     Indication: MINERAL SUPPLEMENTATION
  9. CALCIUM WITH VITAMIN D [Concomitant]
     Indication: OSTEOPENIA
  10. LUCI DIET TEA [Concomitant]
     Indication: FAECALOMA
     Dates: start: 20100801

REACTIONS (5)
  - ABDOMINAL PAIN [None]
  - ABDOMINAL PAIN UPPER [None]
  - BLOOD CHOLESTEROL ABNORMAL [None]
  - FAECALOMA [None]
  - NAUSEA [None]
